FAERS Safety Report 19064388 (Version 3)
Quarter: 2021Q2

REPORT INFORMATION
  Report Type: Report from Study
  Country: BE (occurrence: BE)
  Receive Date: 20210326
  Receipt Date: 20210414
  Transmission Date: 20210717
  Serious: Yes (Death, Hospitalization)
  Sender: FDA-Public Use
  Company Number: BE-REGENERON PHARMACEUTICALS, INC.-2021-35532

PATIENT

DRUGS (6)
  1. CERAZETTE                          /00754001/ [Concomitant]
     Active Substance: DESOGESTREL
     Indication: PRODUCT USED FOR UNKNOWN INDICATION
     Dosage: TOTAL DAILY DOSE: 75 UG
     Route: 048
     Dates: start: 20210212
  2. SAR439459 [Suspect]
     Active Substance: SAR-439459
     Dosage: UNK, Q3W
     Route: 042
     Dates: start: 20210301, end: 20210301
  3. CEMIPLIMAB [Suspect]
     Active Substance: CEMIPLIMAB
     Indication: HEPATOCELLULAR CARCINOMA
     Dosage: 350 MG, Q3W
     Route: 042
  4. CEMIPLIMAB [Suspect]
     Active Substance: CEMIPLIMAB
     Dosage: 350 MG, Q3W
     Route: 042
     Dates: start: 20210301, end: 20210301
  5. SAR439459 [Suspect]
     Active Substance: SAR-439459
     Indication: HEPATOCELLULAR CARCINOMA
     Dosage: UNK UNK, Q3W
     Route: 042
  6. XYZALL [Concomitant]
     Active Substance: LEVOCETIRIZINE DIHYDROCHLORIDE
     Indication: PRODUCT USED FOR UNKNOWN INDICATION
     Dosage: 5 MG, 1X
     Route: 048
     Dates: start: 20210301, end: 20210301

REACTIONS (1)
  - Tumour haemorrhage [Fatal]

NARRATIVE: CASE EVENT DATE: 20210316
